FAERS Safety Report 11818847 (Version 1)
Quarter: 2015Q4

REPORT INFORMATION
  Report Type: Spontaneous
  Country: US (occurrence: US)
  Receive Date: 20151210
  Receipt Date: 20151210
  Transmission Date: 20160305
  Serious: No
  Sender: FDA-Public Use
  Company Number: US-JNJFOC-20150723250

PATIENT
  Sex: Male

DRUGS (5)
  1. INVEGA [Suspect]
     Active Substance: PALIPERIDONE
     Indication: SLEEP DISORDER
     Route: 048
     Dates: start: 2010
  2. INVEGA [Suspect]
     Active Substance: PALIPERIDONE
     Indication: STRESS
     Route: 048
     Dates: start: 2014
  3. RISPERDAL [Suspect]
     Active Substance: RISPERIDONE
     Indication: MOOD SWINGS
     Route: 048
     Dates: start: 2014
  4. INVEGA [Suspect]
     Active Substance: PALIPERIDONE
     Indication: STRESS
     Route: 048
     Dates: start: 2010
  5. INVEGA [Suspect]
     Active Substance: PALIPERIDONE
     Indication: SLEEP DISORDER
     Route: 048
     Dates: start: 2014

REACTIONS (5)
  - Product use issue [Unknown]
  - Hyperprolactinaemia [Unknown]
  - Off label use [Unknown]
  - Abnormal weight gain [Unknown]
  - Gynaecomastia [Unknown]

NARRATIVE: CASE EVENT DATE: 2010
